FAERS Safety Report 9437238 (Version 3)
Quarter: 2014Q1

REPORT INFORMATION
  Report Type: Report from Study
  Country: NL (occurrence: NL)
  Receive Date: 20130802
  Receipt Date: 20140312
  Transmission Date: 20141002
  Serious: Yes (Death, Hospitalization)
  Sender: FDA-Public Use
  Company Number: PHHY2013NL081931

PATIENT
  Age: 80 Year
  Sex: Male

DRUGS (17)
  1. ZOMETA [Suspect]
     Indication: PROSTATE CANCER METASTATIC
     Dosage: 4 MG/100 ML, ONCE EVERY 3 WEEKS
     Route: 042
  2. ZOMETA [Suspect]
     Dosage: 4 MG/100 ML, ONCE EVERY 3 WEEKS
     Route: 042
     Dates: start: 20130531
  3. ZOMETA [Suspect]
     Dosage: 4 MG/100 ML, ONCE EVERY 3 WEEKS
     Route: 042
     Dates: start: 20130711
  4. ACETYLSALICYLIC ACID [Concomitant]
     Dosage: UNK UKN, UNK
  5. BUMETANIDE [Concomitant]
     Dosage: UNK UKN, UNK
  6. CALCIUM CARBONATE [Concomitant]
     Dosage: UNK UKN, UNK
  7. LACTULOSE [Concomitant]
     Dosage: UNK UKN, UNK
  8. TRAMADOL [Concomitant]
     Dosage: UNK UKN, UNK
  9. NAPROXEN [Concomitant]
     Dosage: UNK UKN, UNK
  10. OXYCODON [Concomitant]
     Dosage: UNK UKN, UNK
  11. PANTOZOL [Concomitant]
     Dosage: UNK UKN, UNK
  12. PARACETAMOL [Concomitant]
     Dosage: UNK UKN, UNK
  13. PERINDOPRIL [Concomitant]
     Dosage: UNK UKN, UNK
  14. SIMVASTATINE [Concomitant]
     Dosage: UNK UKN, UNK
  15. TEMAZEPAM [Concomitant]
     Dosage: UNK UKN, UNK
  16. FENTANYL [Concomitant]
     Dosage: UNK UKN, UNK
  17. SAMARIUM (153 SM) LEXIDRONAM [Concomitant]
     Dosage: UNK UKN, UNK
     Dates: start: 20131101

REACTIONS (1)
  - Cardiac arrest [Fatal]
